FAERS Safety Report 8283404-9 (Version None)
Quarter: 2012Q2

REPORT INFORMATION
  Report Type: 
  Country: None (occurrence: None)
  Receive Date: 20120413
  Receipt Date: 20120405
  Transmission Date: 20120825
  Serious: Yes (Hospitalization)
  Sender: FDA-Public Use
  Company Number: US-MPIJNJ-2012-00563

PATIENT
  Sex: Male
  Weight: 75.3 kg

DRUGS (5)
  1. CARBOPLATIN [Suspect]
     Indication: LYMPHOMA
     Dosage: 600 MG, UNK
     Route: 042
     Dates: start: 20111128, end: 20111230
  2. DEXAMETHASONE [Suspect]
     Indication: LYMPHOMA
     Dosage: 20 MG, UNK
     Route: 042
     Dates: start: 20111128, end: 20111230
  3. VELCADE [Suspect]
     Indication: LYMPHOMA
     Dosage: 2 MG, CYCLIC
     Route: 042
     Dates: start: 20111128
  4. ETOPOSIDE [Suspect]
     Indication: PRODUCT USED FOR UNKNOWN INDICATION
     Dosage: 190 MG, UNK
     Route: 042
     Dates: start: 20111128, end: 20111230
  5. IFOSFAMIDE [Suspect]
     Indication: LYMPHOMA
     Dosage: UNK
     Route: 042
     Dates: start: 20111128, end: 20111229

REACTIONS (3)
  - MEDICAL DEVICE COMPLICATION [None]
  - INTRACARDIAC THROMBUS [None]
  - FATIGUE [None]
